FAERS Safety Report 11054770 (Version 1)
Quarter: 2015Q2

REPORT INFORMATION
  Report Type: Spontaneous
  Country: FR (occurrence: FR)
  Receive Date: 20150422
  Receipt Date: 20150422
  Transmission Date: 20150821
  Serious: Yes (Hospitalization)
  Sender: FDA-Public Use
  Company Number: FR-PFIZER INC-2015132942

PATIENT
  Age: 79 Year
  Sex: Female

DRUGS (2)
  1. ERLOTINIB [Suspect]
     Active Substance: ERLOTINIB
     Dosage: 150 MG, DAILY
     Dates: start: 201405
  2. DOXYCYCLINE MONOHYDRATE [Suspect]
     Active Substance: DOXYCYCLINE
     Indication: RASH PUSTULAR
     Dosage: UNK
     Route: 048
     Dates: start: 201407

REACTIONS (1)
  - Pancreatitis acute [Recovered/Resolved]
